FAERS Safety Report 6587984-0 (Version None)
Quarter: 2010Q1

REPORT INFORMATION
  Report Type: 
  Country: None (occurrence: None)
  Receive Date: 20100218
  Receipt Date: 20100212
  Transmission Date: 20100710
  Serious: Yes (Death, Hospitalization)
  Sender: FDA-Public Use
  Company Number: ES-CELGENEUS-144-21880-09121872

PATIENT
  Sex: Male
  Weight: 80 kg

DRUGS (10)
  1. REVLIMID [Suspect]
     Indication: MULTIPLE MYELOMA
     Route: 048
     Dates: start: 20091123, end: 20091210
  2. REVLIMID [Suspect]
     Route: 048
     Dates: start: 20091026, end: 20091115
  3. REVLIMID [Suspect]
     Route: 048
     Dates: start: 20090928, end: 20091018
  4. REVLIMID [Suspect]
     Route: 048
     Dates: start: 20090831, end: 20090914
  5. REVLIMID [Suspect]
     Route: 048
     Dates: start: 20090803, end: 20090817
  6. REVLIMID [Suspect]
     Route: 048
     Dates: start: 20090706, end: 20090726
  7. DEXAMETHASONE [Concomitant]
     Indication: MULTIPLE MYELOMA
     Dosage: 160MG MONTHLY
     Route: 051
     Dates: start: 20090706, end: 20090830
  8. DEXAMETHASONE [Concomitant]
     Dosage: 160MG MONTHLY
     Route: 048
     Dates: start: 20090831, end: 20091019
  9. DEXAMETHASONE [Concomitant]
     Dosage: 160MG MONTHLY
     Route: 051
     Dates: start: 20091026, end: 20091116
  10. RBC CONCENTRATES [Concomitant]
     Indication: DRUG USE FOR UNKNOWN INDICATION
     Route: 051

REACTIONS (4)
  - CARDIAC FAILURE CONGESTIVE [None]
  - CARDIO-RESPIRATORY ARREST [None]
  - HAEMATURIA [None]
  - RENAL FAILURE [None]
